FAERS Safety Report 25845916 (Version 3)
Quarter: 2025Q4

REPORT INFORMATION
  Report Type: Spontaneous
  Country: CN (occurrence: CN)
  Receive Date: 20250925
  Receipt Date: 20251029
  Transmission Date: 20260117
  Serious: Yes (Hospitalization, Other)
  Sender: RANBAXY
  Company Number: CN-SUN PHARMACEUTICAL INDUSTRIES INC-2025R1-528352

PATIENT
  Age: 36 Year
  Sex: Male

DRUGS (1)
  1. FELODIPINE [Suspect]
     Active Substance: FELODIPINE
     Indication: Product used for unknown indication
     Dosage: 2050 MILLIGRAM
     Route: 065

REACTIONS (6)
  - Toxic encephalopathy [Recovered/Resolved]
  - Acute kidney injury [Recovered/Resolved]
  - Toxic cardiomyopathy [Recovered/Resolved]
  - Toxicity to various agents [Unknown]
  - Respiratory failure [Recovered/Resolved]
  - Toxic shock syndrome [Recovered/Resolved]
